FAERS Safety Report 13416436 (Version 2)
Quarter: 2017Q2

REPORT INFORMATION
  Report Type: Other
  Country: US (occurrence: US)
  Receive Date: 20170406
  Receipt Date: 20170427
  Transmission Date: 20170830
  Serious: Yes (Other)
  Sender: FDA-Public Use
  Company Number: US-UNITED THERAPEUTICS-UNT-2017-004494

PATIENT
  Sex: Female
  Weight: 79.37 kg

DRUGS (3)
  1. ORENITRAM [Suspect]
     Active Substance: TREPROSTINIL
     Indication: PULMONARY HYPERTENSION
  2. SILDENAFIL CITRATE. [Concomitant]
     Active Substance: SILDENAFIL CITRATE
     Indication: PRODUCT USED FOR UNKNOWN INDICATION
  3. ORENITRAM [Suspect]
     Active Substance: TREPROSTINIL
     Indication: PULMONARY ARTERIAL HYPERTENSION
     Dosage: 1 MG, TID
     Route: 048
     Dates: start: 20150520

REACTIONS (8)
  - Blister [Not Recovered/Not Resolved]
  - Pain [Unknown]
  - Hyperventilation [Unknown]
  - Arthralgia [Unknown]
  - Pyrexia [Unknown]
  - Depression [Unknown]
  - Pain in jaw [Unknown]
  - Pain in extremity [Unknown]
